FAERS Safety Report 9508565 (Version 2)
Quarter: 2013Q3

REPORT INFORMATION
  Report Type: Spontaneous
  Country: US (occurrence: US)
  Receive Date: 20130909
  Receipt Date: 20130923
  Transmission Date: 20140515
  Serious: Yes (Hospitalization, Other)
  Sender: FDA-Public Use
  Company Number: US-BAXTER-2013BAX035172

PATIENT
  Age: 56 Year
  Sex: Female
  Weight: 50.8 kg

DRUGS (4)
  1. DIANEAL LOW CALCIUM [Suspect]
     Indication: PERITONEAL DIALYSIS
     Route: 033
     Dates: start: 20110211, end: 20130906
  2. DIANEAL LOW CALCIUM [Suspect]
     Route: 033
     Dates: start: 20130910, end: 20130910
  3. DIANEAL LOW CALCIUM (ULTRABAG) [Suspect]
     Indication: PERITONEAL DIALYSIS
     Route: 033
  4. INTERFERON [Concomitant]
     Indication: HEPATITIS C
     Route: 042

REACTIONS (6)
  - Myocardial infarction [Recovered/Resolved]
  - Coronary artery occlusion [Recovered/Resolved]
  - Arteriosclerosis coronary artery [Recovered/Resolved]
  - Blood creatinine increased [Recovered/Resolved]
  - Blood urea increased [Recovered/Resolved]
  - Dyspnoea [Recovered/Resolved]
